FAERS Safety Report 25074102 (Version 1)
Quarter: 2025Q1

REPORT INFORMATION
  Report Type: Spontaneous
  Country: CA (occurrence: None)
  Receive Date: 20250313
  Receipt Date: 20250313
  Transmission Date: 20250408
  Serious: Yes (Hospitalization)
  Sender: ORION
  Company Number: CA-PFIZER INC-202500051951

PATIENT
  Age: 31 Year
  Sex: Female

DRUGS (1)
  1. METHOTREXATE [Suspect]
     Active Substance: METHOTREXATE
     Indication: Rheumatoid arthritis
     Dates: start: 2024, end: 202409

REACTIONS (3)
  - Cyanosis [Unknown]
  - Drug intolerance [Unknown]
  - Rheumatoid arthritis [Unknown]

NARRATIVE: CASE EVENT DATE: 20240101
